FAERS Safety Report 20165542 (Version 3)
Quarter: 2022Q1

REPORT INFORMATION
  Report Type: Spontaneous
  Country: US (occurrence: US)
  Receive Date: 20211209
  Receipt Date: 20220121
  Transmission Date: 20220423
  Serious: Yes (Hospitalization)
  Sender: FDA-Public Use
  Company Number: US-PFIZER INC-202101649386

PATIENT
  Age: 1 Year
  Sex: Female
  Weight: 6.715 kg

DRUGS (1)
  1. GENOTROPIN [Suspect]
     Active Substance: SOMATROPIN
     Indication: Hypopituitarism
     Dosage: ALTERNATING 0.3 AND 0.4 MG
     Dates: start: 202012

REACTIONS (4)
  - Hypoglycaemia [Not Recovered/Not Resolved]
  - Seizure [Not Recovered/Not Resolved]
  - Drug dose omission by device [Unknown]
  - Device leakage [Unknown]

NARRATIVE: CASE EVENT DATE: 20211201
